FAERS Safety Report 5196262-6 (Version None)
Quarter: 2006Q4

REPORT INFORMATION
  Report Type: 
  Country: None (occurrence: None)
  Receive Date: 20061222
  Receipt Date: 20061212
  Transmission Date: 20070319
  Serious: Yes (Hospitalization)
  Sender: FDA-Public Use
  Company Number: 222662

PATIENT
  Age: 74 Year
  Sex: Female
  Weight: 88 kg

DRUGS (10)
  1. AVASTIN [Suspect]
     Indication: COLORECTAL CANCER METASTATIC
     Dosage: 440 MG, Q2W, INTRAVENOUS
     Route: 042
     Dates: start: 20050812, end: 20060214
  2. IRINOTECAN HCL [Suspect]
     Indication: COLORECTAL CANCER METASTATIC
     Dosage: 330 MG, Q2W, INTRAVENOUS
     Route: 042
     Dates: start: 20050812, end: 20060214
  3. FLUOROURACIL [Suspect]
     Indication: COLORECTAL CANCER METASTATIC
     Dosage: 760 MG, Q2W, INTRAVENOUS
     Route: 042
     Dates: start: 20050812, end: 20060214
  4. PIROXICAM [Suspect]
     Indication: DRUG USE FOR UNKNOWN INDICATION
  5. RAMIPRIL [Concomitant]
  6. BISOPROLOL FUMARATE [Concomitant]
  7. LORAZEPAM [Concomitant]
  8. CIPROFLOXACIN [Concomitant]
  9. CORUNO (MOLSIDOMINE) [Concomitant]
  10. ASAFLOW (ASPIRIN) [Concomitant]

REACTIONS (5)
  - ANAEMIA [None]
  - FATIGUE [None]
  - GENERAL PHYSICAL HEALTH DETERIORATION [None]
  - HYPOTENSION [None]
  - RECTAL HAEMORRHAGE [None]
